FAERS Safety Report 12242515 (Version 1)
Quarter: 2016Q2

REPORT INFORMATION
  Report Type: Spontaneous
  Country: CN (occurrence: CN)
  Receive Date: 20160406
  Receipt Date: 20160406
  Transmission Date: 20160815
  Serious: Yes (Other)
  Sender: FDA-Public Use
  Company Number: CN-GILEAD-2016-0206353

PATIENT
  Sex: Female

DRUGS (1)
  1. VIREAD [Suspect]
     Active Substance: TENOFOVIR DISOPROXIL FUMARATE
     Indication: HEPATITIS B
     Dosage: 1 DF, QD
     Route: 048

REACTIONS (3)
  - Maternal exposure during pregnancy [Unknown]
  - Abortion induced [Unknown]
  - Vasodilatation [Not Recovered/Not Resolved]

NARRATIVE: CASE EVENT DATE: 201603
